FAERS Safety Report 4381670-3 (Version None)
Quarter: 2004Q2

REPORT INFORMATION
  Report Type: 
  Country: None (occurrence: None)
  Receive Date: 20040603
  Receipt Date: 20030922
  Transmission Date: 20050107
  Serious: Yes (Hospitalization, Other)
  Sender: FDA-Public Use
  Company Number: 200318375US

PATIENT
  Age: 75 Year
  Sex: Female
  Weight: 77.2 kg

DRUGS (4)
  1. LOVENOX [Suspect]
     Dosage: INJ
     Dates: start: 20030601
  2. WARFARIN SODIUM [Concomitant]
  3. LASIX [Concomitant]
  4. DIGITALIS [Concomitant]

REACTIONS (9)
  - ABDOMINAL PAIN [None]
  - CONTUSION [None]
  - GROIN PAIN [None]
  - HAEMORRHAGE [None]
  - HYPOAESTHESIA [None]
  - LOSS OF CONSCIOUSNESS [None]
  - NAUSEA [None]
  - SKIN DISCOLOURATION [None]
  - SUBCUTANEOUS NODULE [None]
